FAERS Safety Report 8498141 (Version 7)
Quarter: 2012Q4

REPORT INFORMATION
  Report Type: 
  Country: US (occurrence: US)
  Receive Date: 20120406
  Receipt Date: 20120910
  Transmission Date: 20130627
  Serious: Yes (Hospitalization, Other)
  Sender: FDA-Public Use
  Company Number: US-009507513-1204USA00646

PATIENT

DRUGS (14)
  1. FOSAMAX [Suspect]
     Dosage: 70 mg, QW
     Route: 048
     Dates: start: 20040527
  2. BONIVA [Suspect]
     Indication: OSTEOPOROSIS
     Dosage: 150 mg, UNK
     Dates: start: 20070222, end: 20080521
  3. CALCIUM (UNSPECIFIED) [Concomitant]
     Dosage: 600-3000 mg, qd
     Dates: start: 1992
  4. MAGNESIUM (UNSPECIFIED) (+) ZINC (UNSPECIFIED) [Concomitant]
     Dosage: 600 mg, UNK
     Dates: start: 1992
  5. OMEGA-3 MARINE TRIGLYCERIDES [Concomitant]
     Dosage: 3000 mg, UNK
     Dates: start: 1992
  6. VITAMIN E [Concomitant]
     Dosage: 100 mg, UNK
     Dates: start: 1992
  7. ASCORBIC ACID [Concomitant]
     Dosage: 1000 IU, UNK
     Dates: start: 1992
  8. VITAMIN D (UNSPECIFIED) [Concomitant]
     Dosage: 1000 mg, qd
     Dates: start: 1992
  9. CHONDROITIN SULFATE SODIUM (+) GLUCOSAMINE SULFATE [Concomitant]
     Dosage: UNK, bid
     Dates: start: 1992
  10. FOSAMAX [Suspect]
     Indication: OSTEOPOROSIS
     Route: 048
     Dates: end: 201008
  11. ALENDRONATE SODIUM [Suspect]
     Indication: OSTEOPOROSIS
     Dosage: 70 mg qw
     Route: 048
     Dates: start: 20081001, end: 20090731
  12. PREVACID [Concomitant]
     Indication: GASTROOESOPHAGEAL REFLUX DISEASE
  13. PREMPRO [Concomitant]
     Indication: HORMONE REPLACEMENT THERAPY
  14. ALENDRONATE SODIUM [Suspect]
     Indication: OSTEOPOROSIS
     Dosage: 70 mg qw
     Route: 048
     Dates: start: 20091027, end: 20100513

REACTIONS (27)
  - Anaemia postoperative [Unknown]
  - Intervertebral disc disorder [Unknown]
  - Spondylolisthesis [Unknown]
  - Cyst [Unknown]
  - Vertebral foraminal stenosis [Unknown]
  - Femur fracture [Unknown]
  - Nausea [Unknown]
  - Vomiting [Unknown]
  - Carotid pulse abnormal [Unknown]
  - Low turnover osteopathy [Unknown]
  - Psoriasis [Unknown]
  - Bradycardia [Unknown]
  - Mitral valve incompetence [Unknown]
  - Chronic obstructive pulmonary disease [Unknown]
  - Osteoarthritis [Unknown]
  - Cystocele [Unknown]
  - Rectocele [Unknown]
  - Uterine prolapse [Unknown]
  - Cystitis [Unknown]
  - Pollakiuria [Recovering/Resolving]
  - Upper respiratory tract infection [Unknown]
  - Benign breast lump removal [Unknown]
  - Hypertension [Unknown]
  - Hypertonic bladder [Unknown]
  - Dyslipidaemia [Unknown]
  - Arthritis [Unknown]
  - Oedema peripheral [Unknown]
